FAERS Safety Report 5822150-5 (Version None)
Quarter: 2008Q3

REPORT INFORMATION
  Report Type: 
  Country: None (occurrence: None)
  Receive Date: 20080725
  Receipt Date: 20080718
  Transmission Date: 20090109
  Serious: Yes (Other)
  Sender: FDA-Public Use
  Company Number: PHHY2008FR13639

PATIENT
  Age: 44 Year
  Sex: Female

DRUGS (1)
  1. TRILEPTAL [Suspect]
     Indication: EPILEPSY
     Dosage: 300 MG IN MOR + 600 MG IN EVENG
     Dates: start: 20060101

REACTIONS (5)
  - ANXIETY [None]
  - HYPOKINESIA [None]
  - SENSORY LOSS [None]
  - SOMNOLENCE [None]
  - SPEECH DISORDER [None]
